FAERS Safety Report 9844542 (Version 1)
Quarter: 2014Q1

REPORT INFORMATION
  Report Type: Spontaneous
  Country: US (occurrence: None)
  Receive Date: 20140123
  Receipt Date: 20140123
  Transmission Date: 20141002
  Serious: Yes (Death, Hospitalization)
  Sender: FDA-Public Use
  Company Number: US-SEPTODONT-201401690

PATIENT
  Age: 84 Year
  Sex: Female

DRUGS (1)
  1. CITANEST PLAN DENTAL [Suspect]
     Indication: LOCAL ANAESTHESIA
     Dosage: DENTAL

REACTIONS (5)
  - Respiratory distress [None]
  - Cardiac arrest [None]
  - Cardiotoxicity [None]
  - Bronchospasm [None]
  - Circulatory collapse [None]
